FAERS Safety Report 11894429 (Version 1)
Quarter: 2016Q1

REPORT INFORMATION
  Report Type: Spontaneous
  Country: US (occurrence: US)
  Receive Date: 20160107
  Receipt Date: 20160107
  Transmission Date: 20160526
  Serious: No
  Sender: FDA-Public Use
  Company Number: US-BAYER-2016-002987

PATIENT
  Age: 73 Year
  Sex: Female
  Weight: 51.25 kg

DRUGS (5)
  1. CALCIUM [Concomitant]
     Active Substance: CALCIUM
  2. MIRALAX [Suspect]
     Active Substance: POLYETHYLENE GLYCOL 3350
     Indication: CONSTIPATION
     Dosage: 2 DF, HS
     Route: 048
     Dates: start: 2013
  3. IRON [Concomitant]
     Active Substance: IRON
  4. TUMS [Concomitant]
     Active Substance: CALCIUM CARBONATE
  5. THYROID [Concomitant]
     Active Substance: LEVOTHYROXINE\LIOTHYRONINE

REACTIONS (2)
  - Product use issue [None]
  - Intentional product use issue [None]

NARRATIVE: CASE EVENT DATE: 2013
